FAERS Safety Report 19637015 (Version 1)
Quarter: 2021Q3

REPORT INFORMATION
  Report Type: Report from Study
  Country: JP (occurrence: JP)
  Receive Date: 20210730
  Receipt Date: 20210730
  Transmission Date: 20211014
  Serious: Yes (Hospitalization, Other)
  Sender: FDA-Public Use
  Company Number: JP-RECORDATI RARE DISEASE INC.-2021002806

PATIENT
  Age: 15 Day
  Sex: Female
  Weight: 2.57 kg

DRUGS (24)
  1. HEPARIN SODIUM. [Concomitant]
     Active Substance: HEPARIN SODIUM
     Indication: COAGULOPATHY
     Dosage: UNK UNK, UNK
     Route: 042
     Dates: start: 20190716, end: 20190812
  2. GLUCOSE INTRAVENOUS [Concomitant]
     Active Substance: ANHYDROUS DEXTROSE
     Indication: NUTRITIONAL SUPPLEMENTATION
     Dosage: UNK UNK, UNK
     Route: 042
     Dates: start: 20190716, end: 20190724
  3. SODIUM PHOSPHATE [SODIUM PHOSPHATE DIBASIC] [Concomitant]
     Indication: BLOOD PHOSPHORUS DECREASED
     Dosage: UNK UNK, UNK
     Route: 042
     Dates: start: 20190718, end: 20190724
  4. SODIUM PHOSPHATE [SODIUM PHOSPHATE DIBASIC] [Concomitant]
     Indication: MINERAL SUPPLEMENTATION
  5. DOBUTREX [Concomitant]
     Active Substance: DOBUTAMINE HYDROCHLORIDE
     Indication: HYDROPS FOETALIS
     Dosage: UNK UNK, UNK
     Route: 042
     Dates: start: 20190716, end: 20190723
  6. OTSUKA MV [Concomitant]
     Indication: VITAMIN SUPPLEMENTATION
     Dosage: UNK UNK, UNK
     Route: 042
     Dates: start: 20190717, end: 20190723
  7. KAYTWO [Concomitant]
     Active Substance: MENATETRENONE
     Indication: HAEMORRHAGE PROPHYLAXIS
     Dosage: UNK UNK, UNK
     Route: 048
     Dates: start: 20190723, end: 20190904
  8. NEOPROFEN [Suspect]
     Active Substance: IBUPROFEN LYSINE
     Dosage: 12.16 MILLIGRAM, QD
     Route: 042
     Dates: start: 20190724, end: 20190724
  9. KCL [Concomitant]
     Active Substance: POTASSIUM CHLORIDE
     Indication: MINERAL SUPPLEMENTATION
     Dosage: UNK UNK, UNK
     Route: 042
     Dates: start: 20190718, end: 20190724
  10. FENTANYL [FENTANYL CITRATE] [Concomitant]
     Active Substance: FENTANYL CITRATE
     Indication: HYDROPS FOETALIS
     Dosage: UNK UNK, UNK
     Route: 042
     Dates: start: 20190716, end: 20190725
  11. HEPARIN SODIUM. [Concomitant]
     Active Substance: HEPARIN SODIUM
     Indication: PROPHYLAXIS
  12. SOLDEM 3AG [Concomitant]
     Indication: PRODUCT USED FOR UNKNOWN INDICATION
     Dosage: UNK UNK, UNK
     Route: 042
     Dates: start: 20190718, end: 20190812
  13. CALCICOL [Concomitant]
     Active Substance: CALCIUM GLUCONATE
     Indication: MINERAL SUPPLEMENTATION
     Dosage: UNK UNK, UNK
     Route: 042
     Dates: start: 20190716, end: 20190724
  14. MINERIC 5 [Concomitant]
     Indication: TRACE ELEMENT DEFICIENCY
     Dosage: UNK UNK, UNK
     Route: 042
     Dates: start: 20190717, end: 20190723
  15. GLUCOSE INTRAVENOUS [Concomitant]
     Active Substance: ANHYDROUS DEXTROSE
     Indication: BLOOD GLUCOSE DECREASED
  16. KAYTWO [Concomitant]
     Active Substance: MENATETRENONE
     Indication: VITAMIN K DEFICIENCY
  17. JUVELA N [Concomitant]
     Active Substance: TOCOPHERYL NICOTINATE, D-.ALPHA.
     Indication: VITAMIN SUPPLEMENTATION
     Dosage: UNK UNK, UNK
     Route: 048
     Dates: start: 20190724, end: 20190904
  18. NEOPROFEN [Suspect]
     Active Substance: IBUPROFEN LYSINE
     Dosage: 12.16 MILLIGRAM, QD
     Route: 042
     Dates: start: 20190725, end: 20190725
  19. ISOTONIC SODIUM CHLORIDE SOLUTION [Concomitant]
     Active Substance: SODIUM CHLORIDE
     Indication: PRODUCT USED FOR UNKNOWN INDICATION
     Dosage: UNK UNK, UNK
     Route: 042
     Dates: start: 20190716, end: 20190723
  20. PANVITAN [ASCORBIC ACID;DEXPANTHENOL;ERGOCALCIFEROL;NICOTINAMIDE;PYRID [Concomitant]
     Indication: VITAMIN SUPPLEMENTATION
     Dosage: UNK UNK, UNK
     Route: 048
     Dates: start: 20190724, end: 20190904
  21. LASIX [Concomitant]
     Active Substance: FUROSEMIDE
     Indication: HYDROPS FOETALIS
     Dosage: UNK UNK, UNK
     Route: 042
     Dates: start: 20190717, end: 20190801
  22. NEOPROFEN [Suspect]
     Active Substance: IBUPROFEN LYSINE
     Indication: PATENT DUCTUS ARTERIOSUS
     Dosage: 24.32 MILLIGRAM, QD
     Route: 042
     Dates: start: 20190723, end: 20190723
  23. PLEAMIN P [Concomitant]
     Indication: NUTRITIONAL SUPPLEMENTATION
     Dosage: UNK UNK, UNK
     Route: 042
     Dates: start: 20190717, end: 20190723
  24. INOVAN [DOPAMINE HYDROCHLORIDE] [Concomitant]
     Indication: HYDROPS FOETALIS
     Dosage: UNK UNK, UNK
     Route: 042
     Dates: start: 20190716, end: 20190723

REACTIONS (1)
  - Rhabdomyolysis [Recovering/Resolving]

NARRATIVE: CASE EVENT DATE: 20190731
